FAERS Safety Report 8999224 (Version 4)
Quarter: 2013Q2

REPORT INFORMATION
  Report Type: Report from Study
  Country: PL (occurrence: PL)
  Receive Date: 20130103
  Receipt Date: 20130517
  Transmission Date: 20140414
  Serious: Yes (Hospitalization)
  Sender: FDA-Public Use
  Company Number: PL-BRISTOL-MYERS SQUIBB COMPANY-17254574

PATIENT
  Age: 18 Year
  Sex: Female

DRUGS (5)
  1. ARIPIPRAZOLE [Suspect]
     Indication: SCHIZOPHRENIA
     Dosage: INTER ON 25DC12,29DEC12?30MG/DAY:FROM 30DEC2012-ONG
     Route: 048
     Dates: start: 20120319, end: 20121229
  2. HALOPERIDOL [Concomitant]
  3. CHLORPROMAZINE HCL [Concomitant]
  4. DIAZEPAM [Concomitant]
  5. CLINDAMYCIN [Concomitant]

REACTIONS (1)
  - Schizophrenia [Recovered/Resolved]
